FAERS Safety Report 9354673 (Version 1)
Quarter: 2013Q2

REPORT INFORMATION
  Report Type: Spontaneous
  Country: US (occurrence: US)
  Receive Date: 20130619
  Receipt Date: 20130619
  Transmission Date: 20140414
  Serious: No
  Sender: FDA-Public Use
  Company Number: US-009507513-1306USA004401

PATIENT
  Sex: Male

DRUGS (1)
  1. COSOPT PF [Suspect]
     Indication: POST PROCEDURAL COMPLICATION
     Dosage: 1 UNK, BID
     Route: 047

REACTIONS (3)
  - Underdose [Unknown]
  - Product quality issue [Unknown]
  - No adverse event [Unknown]
